FAERS Safety Report 13587657 (Version 1)
Quarter: 2017Q2

REPORT INFORMATION
  Report Type: Spontaneous
  Country: US (occurrence: US)
  Receive Date: 20170526
  Receipt Date: 20170526
  Transmission Date: 20170830
  Serious: No
  Sender: FDA-Public Use
  Company Number: US-009507513-1705USA013842

PATIENT
  Sex: Male

DRUGS (3)
  1. TRAZODONE HYDROCHLORIDE. [Concomitant]
     Active Substance: TRAZODONE HYDROCHLORIDE
  2. KLONOPIN [Concomitant]
     Active Substance: CLONAZEPAM
  3. BELSOMRA [Suspect]
     Active Substance: SUVOREXANT
     Indication: INSOMNIA
     Dosage: 20 MG, ONCE A DAY
     Route: 048
     Dates: start: 201705, end: 201705

REACTIONS (1)
  - Feeling abnormal [Recovered/Resolved]

NARRATIVE: CASE EVENT DATE: 201705
